FAERS Safety Report 22102919 (Version 4)
Quarter: 2023Q2

REPORT INFORMATION
  Report Type: Spontaneous
  Country: US (occurrence: US)
  Receive Date: 20230316
  Receipt Date: 20230508
  Transmission Date: 20230722
  Serious: Yes (Other)
  Sender: FDA-Public Use
  Company Number: US-PFIZER INC-202300112594

PATIENT
  Age: 90 Year
  Sex: Male
  Weight: 79.5 kg

DRUGS (1)
  1. VYNDAMAX [Suspect]
     Active Substance: TAFAMIDIS
     Indication: Cardiac disorder
     Dosage: UNK

REACTIONS (4)
  - Product use complaint [Unknown]
  - Oesophageal stenosis [Unknown]
  - Oesophageal disorder [Unknown]
  - Off label use [Unknown]
